FAERS Safety Report 17121056 (Version 1)
Quarter: 2019Q4

REPORT INFORMATION
  Report Type: Spontaneous
  Country: US (occurrence: US)
  Receive Date: 20191205
  Receipt Date: 20191205
  Transmission Date: 20200122
  Serious: Yes (Disabling)
  Sender: FDA-Public Use
  Company Number: None

PATIENT
  Age: 60 Year
  Sex: Female
  Weight: 68.4 kg

DRUGS (9)
  1. LANTUS [Concomitant]
     Active Substance: INSULIN GLARGINE
  2. SIMVASTATIN. [Concomitant]
     Active Substance: SIMVASTATIN
  3. ATIVAN [Concomitant]
     Active Substance: LORAZEPAM
  4. LAMOTRIGINE. [Concomitant]
     Active Substance: LAMOTRIGINE
  5. NOVOLOG [Concomitant]
     Active Substance: INSULIN ASPART
  6. LISINOPRIL. [Suspect]
     Active Substance: LISINOPRIL
     Indication: DIABETES MELLITUS
     Dosage: ?          QUANTITY:1 TABLET(S);?
     Route: 048
     Dates: start: 20190515, end: 20191106
  7. VITAMIN D [Concomitant]
     Active Substance: VITAMIN D NOS
  8. MIRTAZAPINE. [Concomitant]
     Active Substance: MIRTAZAPINE
  9. LEVOTHYROXINE. [Concomitant]
     Active Substance: LEVOTHYROXINE

REACTIONS (3)
  - Cough [None]
  - Urinary incontinence [None]
  - Middle insomnia [None]

NARRATIVE: CASE EVENT DATE: 20190515
